FAERS Safety Report 4598705-5 (Version None)
Quarter: 2005Q1

REPORT INFORMATION
  Report Type: 
  Country: None (occurrence: None)
  Receive Date: 20050301
  Receipt Date: 20050301
  Transmission Date: 20050727
  Serious: Yes (Other)
  Sender: FDA-Public Use
  Company Number: None

PATIENT
  Age: 32 Year
  Sex: Female
  Weight: 68.0396 kg

DRUGS (4)
  1. CLOMIPHENE CITRATE [Suspect]
     Indication: INFERTILITY
     Dosage: 1 PILL 1 TIME PER DAY ORAL
     Route: 048
     Dates: start: 20050103, end: 20050105
  2. CLOMIPHENE CITRATE [Suspect]
     Indication: LUTEAL PHASE DEFICIENCY
     Dosage: 1 PILL 1 TIME PER DAY ORAL
     Route: 048
     Dates: start: 20050103, end: 20050105
  3. CLOMIPHENE CITRATE [Suspect]
     Indication: SPERMATOZOA ABNORMAL
     Dosage: 1 PILL 1 TIME PER DAY ORAL
     Route: 048
     Dates: start: 20050103, end: 20050105
  4. PROGESTERONE [Concomitant]

REACTIONS (3)
  - READING DISORDER [None]
  - VISUAL DISTURBANCE [None]
  - VISUAL FIELD DEFECT [None]
